FAERS Safety Report 9418124 (Version 2)
Quarter: 2013Q3

REPORT INFORMATION
  Report Type: Spontaneous
  Country: US (occurrence: US)
  Receive Date: 20130724
  Receipt Date: 20130814
  Transmission Date: 20140515
  Serious: Yes (Other)
  Sender: FDA-Public Use
  Company Number: US-ASTRAZENECA-2013SE52410

PATIENT
  Age: 45 Year
  Sex: Male
  Weight: 59 kg

DRUGS (7)
  1. SEROQUEL [Suspect]
     Indication: SLEEP DISORDER
     Dosage: STARTED AT 50 MG AND IT WAS GRADUALLY INCREASED TO 300 MG A DAY
     Route: 048
     Dates: start: 20120530, end: 201211
  2. SEROQUEL [Suspect]
     Indication: SLEEP DISORDER
     Dosage: STARTED AT 50 MG AND IT WAS GRADUALLY INCREASED TO 300 MG A DAY
     Route: 048
     Dates: start: 20120530, end: 201211
  3. AMBIEN [Concomitant]
  4. FLUOROMETHOLONE EYE DROPS [Concomitant]
     Indication: RETINAL DETACHMENT
     Dosage: 0.1% DAILY
     Route: 050
  5. VOLTAREN [Concomitant]
     Indication: RETINAL DETACHMENT
     Dosage: 0.1% DAILY
     Route: 050
  6. MULTIVITAMINS [Concomitant]
  7. PRED FORTE [Concomitant]
     Indication: RETINAL DETACHMENT

REACTIONS (7)
  - Retinal detachment [Unknown]
  - Visual field defect [Unknown]
  - Eye pain [Not Recovered/Not Resolved]
  - Intraocular pressure increased [Recovered/Resolved]
  - Sedation [Unknown]
  - Glaucoma [Unknown]
  - Intentional drug misuse [Recovered/Resolved]
